FAERS Safety Report 13109131 (Version 18)
Quarter: 2018Q2

REPORT INFORMATION
  Report Type: Report from Study
  Country: US (occurrence: US)
  Receive Date: 20170112
  Receipt Date: 20180426
  Transmission Date: 20180711
  Serious: Yes (Hospitalization, Other)
  Sender: FDA-Public Use
  Company Number: US-JNJFOC-20160920835

PATIENT
  Age: 68 Year
  Sex: Female

DRUGS (8)
  1. IMBRUVICA [Suspect]
     Active Substance: IBRUTINIB
     Indication: CHRONIC LYMPHOCYTIC LEUKAEMIA
     Route: 048
     Dates: start: 20170510, end: 201706
  2. MIRALAX [Suspect]
     Active Substance: POLYETHYLENE GLYCOL 3350
     Indication: PRODUCT USED FOR UNKNOWN INDICATION
     Route: 065
  3. ASPIRIN. [Suspect]
     Active Substance: ASPIRIN
     Indication: PRODUCT USED FOR UNKNOWN INDICATION
     Route: 065
  4. AMITRIPTYLINE [Suspect]
     Active Substance: AMITRIPTYLINE
     Indication: PRODUCT USED FOR UNKNOWN INDICATION
     Route: 065
  5. ALBUTEROL. [Suspect]
     Active Substance: ALBUTEROL
     Indication: PRODUCT USED FOR UNKNOWN INDICATION
  6. IMBRUVICA [Suspect]
     Active Substance: IBRUTINIB
     Indication: CHRONIC LYMPHOCYTIC LEUKAEMIA
     Route: 048
     Dates: start: 20160908
  7. IMBRUVICA [Suspect]
     Active Substance: IBRUTINIB
     Indication: CHRONIC LYMPHOCYTIC LEUKAEMIA
     Route: 048
     Dates: start: 201706
  8. IMBRUVICA [Suspect]
     Active Substance: IBRUTINIB
     Indication: CHRONIC LYMPHOCYTIC LEUKAEMIA
     Route: 048
     Dates: start: 20160913, end: 20171027

REACTIONS (62)
  - Blood magnesium decreased [Unknown]
  - Blood potassium decreased [Unknown]
  - Red blood cells urine positive [Not Recovered/Not Resolved]
  - Polyp [Unknown]
  - Pain [Recovered/Resolved]
  - Dry skin [Not Recovered/Not Resolved]
  - Breast calcifications [Not Recovered/Not Resolved]
  - Urine abnormality [Not Recovered/Not Resolved]
  - Cystitis noninfective [Not Recovered/Not Resolved]
  - Muscle spasms [Unknown]
  - Cough [Not Recovered/Not Resolved]
  - Petechiae [Not Recovered/Not Resolved]
  - Balance disorder [Not Recovered/Not Resolved]
  - Nausea [Unknown]
  - Ovarian cyst [Unknown]
  - Xanthopsia [Recovered/Resolved]
  - Skin fissures [Not Recovered/Not Resolved]
  - White blood cells urine positive [Not Recovered/Not Resolved]
  - Insomnia [Not Recovered/Not Resolved]
  - Fatigue [Not Recovered/Not Resolved]
  - Abdominal pain upper [Not Recovered/Not Resolved]
  - Arthralgia [Not Recovered/Not Resolved]
  - Infection [Not Recovered/Not Resolved]
  - Cardiac failure congestive [Unknown]
  - Anaphylactic reaction [Not Recovered/Not Resolved]
  - Feeling abnormal [Recovered/Resolved]
  - Formication [Recovered/Resolved]
  - Skin exfoliation [Not Recovered/Not Resolved]
  - Lung disorder [Unknown]
  - Tryptase increased [Unknown]
  - Constipation [Recovered/Resolved]
  - Skin haemorrhage [Not Recovered/Not Resolved]
  - Blood pressure increased [Unknown]
  - Protein urine present [Not Recovered/Not Resolved]
  - Crystal urine present [Not Recovered/Not Resolved]
  - Oxygen saturation decreased [Unknown]
  - Diarrhoea [Recovered/Resolved]
  - Pruritus [Not Recovered/Not Resolved]
  - Injection site haematoma [Unknown]
  - Dyspepsia [Recovered/Resolved]
  - Oropharyngeal pain [Not Recovered/Not Resolved]
  - Contusion [Unknown]
  - Urinary bladder haemorrhage [Not Recovered/Not Resolved]
  - Paralysis [Unknown]
  - Neuropathy peripheral [Not Recovered/Not Resolved]
  - Mammogram abnormal [Unknown]
  - Thyroid disorder [Not Recovered/Not Resolved]
  - Bronchitis [Recovering/Resolving]
  - White blood cell count increased [Not Recovered/Not Resolved]
  - Dizziness [Unknown]
  - Uterine leiomyoma [Unknown]
  - Dysphonia [Recovered/Resolved]
  - Laboratory test abnormal [Not Recovered/Not Resolved]
  - Intra-abdominal fluid collection [Unknown]
  - White blood cell count decreased [Not Recovered/Not Resolved]
  - Abdominal discomfort [Recovered/Resolved]
  - Peripheral swelling [Recovered/Resolved]
  - Endometriosis [Unknown]
  - Acne [Not Recovered/Not Resolved]
  - Contrast media reaction [Not Recovered/Not Resolved]
  - Mouth ulceration [Not Recovered/Not Resolved]
  - Drug hypersensitivity [Not Recovered/Not Resolved]

NARRATIVE: CASE EVENT DATE: 20160913
